FAERS Safety Report 5022082-9 (Version None)
Quarter: 2006Q2

REPORT INFORMATION
  Report Type: 
  Country: None (occurrence: None)
  Receive Date: 20060428
  Receipt Date: 20060228
  Transmission Date: 20061013
  Serious: No
  Sender: FDA-Public Use
  Company Number: COT_0489_2006

PATIENT
  Age: 39 Year
  Sex: Female
  Weight: 81.1939 kg

DRUGS (11)
  1. VENTAVIS [Suspect]
     Indication: PULMONARY HYPERTENSION
     Dosage: 5 MCG 6XD IH
     Route: 055
     Dates: start: 20060206
  2. WARFARIN SODIUM [Concomitant]
  3. LEVOXYL [Concomitant]
  4. TRACLEER [Concomitant]
  5. ALTACE [Concomitant]
  6. FUROSEMIDE [Concomitant]
  7. DIGOXIN [Concomitant]
  8. SUSTIVA [Concomitant]
  9. TRIZIVIR [Concomitant]
  10. SINGULAIR [Concomitant]
  11. AMBIEN [Concomitant]

REACTIONS (2)
  - PAIN IN EXTREMITY [None]
  - PHARYNGOLARYNGEAL PAIN [None]
